FAERS Safety Report 8478092-2 (Version None)
Quarter: 2012Q2

REPORT INFORMATION
  Report Type: 
  Country: None (occurrence: None)
  Receive Date: 20120629
  Receipt Date: 20120622
  Transmission Date: 20120825
  Serious: Yes (Other)
  Sender: FDA-Public Use
  Company Number: US-BAYER-201017006NA

PATIENT
  Age: 39 Year
  Sex: Female
  Weight: 56.689 kg

DRUGS (3)
  1. YAZ [Suspect]
     Indication: CONTRACEPTION
     Dosage: UNK
     Route: 048
     Dates: start: 20080401, end: 20090601
  2. BUPROPION HCL [Concomitant]
     Dosage: 75 MG, UNK
     Dates: start: 20081117, end: 20091211
  3. WELLBUTRIN XL [Concomitant]
     Indication: SMOKING CESSATION THERAPY
     Dosage: 150 MG, UNK
     Dates: start: 20061222, end: 20080524

REACTIONS (2)
  - MENTAL DISORDER [None]
  - DEEP VEIN THROMBOSIS [None]
